FAERS Safety Report 20573575 (Version 4)
Quarter: 2022Q2

REPORT INFORMATION
  Report Type: Report from Study
  Country: US (occurrence: US)
  Receive Date: 20220309
  Receipt Date: 20220407
  Transmission Date: 20220721
  Serious: No
  Sender: FDA-Public Use
  Company Number: US-SA-SAC20220303001482

PATIENT
  Age: 38 Year
  Sex: Female

DRUGS (3)
  1. CABLIVI [Suspect]
     Active Substance: CAPLACIZUMAB-YHDP
     Indication: Thrombotic microangiopathy
     Dosage: 11 MG, QD
     Route: 058
     Dates: start: 20220217
  2. PREDNISONE [Suspect]
     Active Substance: PREDNISONE
     Dosage: UNK
     Dates: start: 2022
  3. RITUXAN [Concomitant]
     Active Substance: RITUXIMAB
     Dosage: UNK
     Dates: start: 2022, end: 2022

REACTIONS (13)
  - Hypertension [Unknown]
  - Blood pressure increased [Unknown]
  - Epistaxis [Unknown]
  - Tachycardia [Unknown]
  - Mood swings [Unknown]
  - Platelet count abnormal [Unknown]
  - Urinary tract infection [Recovered/Resolved]
  - Injection site bruising [Unknown]
  - Tremor [Recovered/Resolved]
  - Platelet count decreased [Recovering/Resolving]
  - ADAMTS13 activity decreased [Recovering/Resolving]
  - Heavy menstrual bleeding [Recovered/Resolved]
  - Fatigue [Unknown]

NARRATIVE: CASE EVENT DATE: 20220101
